FAERS Safety Report 15394950 (Version 10)
Quarter: 2019Q4

REPORT INFORMATION
  Report Type: Report from Study
  Country: US (occurrence: US)
  Receive Date: 20180918
  Receipt Date: 20191015
  Transmission Date: 20200122
  Serious: Yes (Other)
  Sender: FDA-Public Use
  Company Number: PHEH2018US037761

PATIENT
  Age: 60 Year
  Sex: Female
  Weight: 75.74 kg

DRUGS (6)
  1. DEXAMETHASONE. [Suspect]
     Active Substance: DEXAMETHASONE
     Indication: URETERAL NEOPLASM
  2. AFINITOR [Suspect]
     Active Substance: EVEROLIMUS
     Indication: ANGIOMYOLIPOMA
     Dosage: 10 MG, QD
     Route: 048
     Dates: start: 20180828
  3. DEXAMETHASONE. [Suspect]
     Active Substance: DEXAMETHASONE
     Indication: RENAL NEOPLASM
     Dosage: 0.5 MG/ 5 ML, UNK
     Route: 048
     Dates: start: 20180820
  4. PROBIOTIC [Concomitant]
     Active Substance: PROBIOTICS NOS
     Indication: PRODUCT USED FOR UNKNOWN INDICATION
     Route: 065
  5. URETOL [Concomitant]
     Indication: PRODUCT USED FOR UNKNOWN INDICATION
     Dosage: 1 DF, QID
     Route: 048
     Dates: start: 20180820
  6. FLONASE [Concomitant]
     Active Substance: FLUTICASONE PROPIONATE
     Indication: PRODUCT USED FOR UNKNOWN INDICATION
     Dosage: 1 DF, QD
     Route: 045
     Dates: start: 20180820

REACTIONS (13)
  - Blood pressure increased [Unknown]
  - Anxiety [Unknown]
  - Depression [Unknown]
  - Malaise [Unknown]
  - Pain in extremity [Unknown]
  - Insomnia [Unknown]
  - Peripheral swelling [Recovering/Resolving]
  - Escherichia urinary tract infection [Recovered/Resolved]
  - Bladder prolapse [Unknown]
  - Blood iron decreased [Unknown]
  - Vein disorder [Unknown]
  - Gait inability [Unknown]
  - Anaemia [Unknown]

NARRATIVE: CASE EVENT DATE: 20180906
